FAERS Safety Report 19749455 (Version 1)
Quarter: 2021Q3

REPORT INFORMATION
  Report Type: Spontaneous
  Country: US (occurrence: US)
  Receive Date: 20210824
  Receipt Date: 20210824
  Transmission Date: 20211014
  Serious: Yes (Death, Hospitalization)
  Sender: FDA-Public Use
  Company Number: None

PATIENT
  Age: 73 Year
  Sex: Male

DRUGS (9)
  1. HUMALOG [Concomitant]
     Active Substance: INSULIN LISPRO
  2. AMLODIPINE [Concomitant]
     Active Substance: AMLODIPINE BESYLATE
  3. ACTEMRA ACTPEN [Suspect]
     Active Substance: TOCILIZUMAB
     Indication: GIANT CELL ARTERITIS
     Dosage: DOSE OR AMOUNT: 1 PEN
     Route: 058
     Dates: start: 20210529, end: 20210628
  4. FUROSEMIDE. [Concomitant]
     Active Substance: FUROSEMIDE
  5. VICTOZA [Concomitant]
     Active Substance: LIRAGLUTIDE
  6. METOPROL TAR [Concomitant]
  7. PLAVIX [Concomitant]
     Active Substance: CLOPIDOGREL BISULFATE
  8. FIASP FLEX [Concomitant]
  9. TRESIBA FLEX [Concomitant]

REACTIONS (1)
  - Death [None]

NARRATIVE: CASE EVENT DATE: 20210628
